FAERS Safety Report 17070900 (Version 2)
Quarter: 2019Q4

REPORT INFORMATION
  Report Type: Spontaneous
  Country: FR (occurrence: FR)
  Receive Date: 20191125
  Receipt Date: 20191202
  Transmission Date: 20200122
  Serious: Yes (Other)
  Sender: FDA-Public Use
  Company Number: FR-PFIZER INC-2019502178

PATIENT
  Sex: Female

DRUGS (1)
  1. ETHINYLESTRADIOL/LEVONORGESTREL [Suspect]
     Active Substance: ETHINYL ESTRADIOL\LEVONORGESTREL
     Dosage: UNK (DURING 1ST TRIMESTER)
     Route: 065

REACTIONS (4)
  - Product dose omission [Unknown]
  - Product administration error [Unknown]
  - Maternal exposure during pregnancy [Unknown]
  - Abortion [Unknown]
